FAERS Safety Report 11905776 (Version 2)
Quarter: 2019Q3

REPORT INFORMATION
  Report Type: Spontaneous
  Country: FR (occurrence: FR)
  Receive Date: 20160111
  Receipt Date: 20190705
  Transmission Date: 20191004
  Serious: Yes (Hospitalization, Other)
  Sender: FDA-Public Use
  Company Number: FR-BIOVITRUM-2016FR0005

PATIENT
  Age: 30 Year
  Sex: Female

DRUGS (11)
  1. TARDYFERON B9 [Concomitant]
     Active Substance: FERROUS SULFATE\FOLIC ACID\GASTRIC MUCIN
     Dosage: 1 TABLET DAILY
     Dates: end: 20151121
  2. PERFALGAN [Suspect]
     Active Substance: ACETAMINOPHEN
     Dates: start: 20151129
  3. CIMZIA [Suspect]
     Active Substance: CERTOLIZUMAB PEGOL
     Dates: start: 20151118
  4. PREDNISONE. [Suspect]
     Active Substance: PREDNISONE
     Dosage: UNK, 500 MG BOLUS
     Dates: start: 20151128
  5. INSULIN [Concomitant]
     Active Substance: INSULIN NOS
  6. TOCILIZUMAB. [Suspect]
     Active Substance: TOCILIZUMAB
     Dosage: UNK, 560 MG
     Route: 042
     Dates: start: 20151012, end: 20151109
  7. KINERET [Suspect]
     Active Substance: ANAKINRA
     Dates: start: 20151007, end: 20151104
  8. HUMAN IMMUNOGLOBULIN [Suspect]
     Active Substance: HUMAN IMMUNOGLOBULIN G
     Dates: start: 20151128, end: 20151128
  9. KINERET [Suspect]
     Active Substance: ANAKINRA
     Indication: STILL^S DISEASE
     Route: 058
     Dates: start: 20150924, end: 20151003
  10. HUMAN IMMUNOGLOBULIN [Suspect]
     Active Substance: HUMAN IMMUNOGLOBULIN G
     Dates: start: 20151129, end: 20151129
  11. CORTICOSTEROID [Concomitant]
     Active Substance: CORTICOSTEROID NOS
     Dates: end: 20151117

REACTIONS (6)
  - Hypersensitivity [Unknown]
  - Hypersensitivity [Unknown]
  - Pruritus [Unknown]
  - Rash generalised [Unknown]
  - Pyrexia [Unknown]
  - Herpes simplex [Unknown]

NARRATIVE: CASE EVENT DATE: 2015
